FAERS Safety Report 10439931 (Version 1)
Quarter: 2014Q3

REPORT INFORMATION
  Report Type: Spontaneous
  Country: GB (occurrence: GB)
  Receive Date: 20140908
  Receipt Date: 20140908
  Transmission Date: 20150326
  Serious: Yes (Other)
  Sender: FDA-Public Use
  Company Number: GB-TEVA-505821ISR

PATIENT
  Age: 61 Year
  Sex: Male
  Weight: 154 kg

DRUGS (6)
  1. ATORVASTATIN CALCIUM. [Concomitant]
     Active Substance: ATORVASTATIN CALCIUM
  2. CIPROFLOXACIN. [Suspect]
     Active Substance: CIPROFLOXACIN
     Indication: PROSTATITIS
     Dosage: 1000 MILLIGRAM DAILY;
     Route: 048
     Dates: start: 20140416, end: 20140528
  3. LOSARTAN [Concomitant]
     Active Substance: LOSARTAN
  4. INHALERS [Concomitant]
     Active Substance: UNSPECIFIED INGREDIENT
  5. MONTELUKAST [Concomitant]
     Active Substance: MONTELUKAST SODIUM
  6. AMLODIPINE [Concomitant]
     Active Substance: AMLODIPINE BESYLATE

REACTIONS (3)
  - Tinnitus [Recovering/Resolving]
  - Hyperacusis [Recovering/Resolving]
  - Deafness [Recovering/Resolving]
